FAERS Safety Report 18981577 (Version 2)
Quarter: 2021Q3

REPORT INFORMATION
  Report Type: Report from Study
  Country: US (occurrence: US)
  Receive Date: 20210308
  Receipt Date: 20210816
  Transmission Date: 20211014
  Serious: Yes (Other)
  Sender: FDA-Public Use
  Company Number: NVSC2021US048837

PATIENT
  Age: 57 Year
  Sex: Male

DRUGS (2)
  1. GILENYA [Suspect]
     Active Substance: FINGOLIMOD HYDROCHLORIDE
     Indication: RELAPSING-REMITTING MULTIPLE SCLEROSIS
     Dosage: UNK
     Route: 065
  2. GILENYA [Suspect]
     Active Substance: FINGOLIMOD HYDROCHLORIDE
     Dosage: 0.5 MG, QD
     Route: 048
     Dates: start: 20210709

REACTIONS (8)
  - Intentional product misuse [Not Recovered/Not Resolved]
  - Rheumatoid arthritis [Unknown]
  - Nasal congestion [Not Recovered/Not Resolved]
  - Fibromyalgia [Unknown]
  - Multiple sclerosis [Unknown]
  - Arthritis [Unknown]
  - Myelopathy [Unknown]
  - Radiculopathy [Unknown]

NARRATIVE: CASE EVENT DATE: 20210709
